FAERS Safety Report 6301947-1 (Version None)
Quarter: 2009Q3

REPORT INFORMATION
  Report Type: 
  Country: None (occurrence: None)
  Receive Date: 20090807
  Receipt Date: 20090729
  Transmission Date: 20100115
  Serious: Yes (Hospitalization, Other)
  Sender: FDA-Public Use
  Company Number: FR-WYE-H10428009

PATIENT
  Sex: Male

DRUGS (6)
  1. INIPOMP [Suspect]
     Dosage: UNKNOWN
     Route: 048
  2. SIMVASTATIN [Suspect]
     Dosage: UNKNOWN
     Route: 048
  3. LYRICA [Suspect]
     Dosage: UNKNOWN
     Route: 048
  4. CARDENSIEL [Suspect]
     Dosage: UNKNOWN
     Route: 048
  5. BYETTA [Suspect]
     Indication: DIABETES MELLITUS
     Route: 058
     Dates: start: 20081101, end: 20090619
  6. GLUCOPHAGE [Suspect]
     Dosage: 3000 MG, FREQUENCY UNKNOWN
     Route: 048
     Dates: end: 20090619

REACTIONS (1)
  - HEPATIC NEOPLASM MALIGNANT [None]
